FAERS Safety Report 24313792 (Version 3)
Quarter: 2025Q3

REPORT INFORMATION
  Report Type: Report from Study
  Country: US (occurrence: US)
  Receive Date: 20240912
  Receipt Date: 20250816
  Transmission Date: 20251020
  Serious: No
  Sender: ALEXION PHARMACEUTICALS
  Company Number: US-AstraZeneca-CH-00702329A

PATIENT
  Sex: Female

DRUGS (1)
  1. ULTOMIRIS [Suspect]
     Active Substance: RAVULIZUMAB-CWVZ
     Indication: Neuromyelitis optica spectrum disorder
     Route: 065

REACTIONS (6)
  - Eye pruritus [Unknown]
  - Headache [Recovering/Resolving]
  - Pain [Unknown]
  - Vision blurred [Not Recovered/Not Resolved]
  - Pyrexia [Unknown]
  - Eye disorder [Unknown]
